FAERS Safety Report 4752875-4 (Version None)
Quarter: 2005Q3

REPORT INFORMATION
  Report Type: 
  Country: None (occurrence: None)
  Receive Date: 20050823
  Receipt Date: 20050810
  Transmission Date: 20060218
  Serious: Yes (Hospitalization)
  Sender: FDA-Public Use
  Company Number: 210892

PATIENT
  Age: 51 Year
  Sex: Female
  Weight: 89.3 kg

DRUGS (22)
  1. AVASTIN [Suspect]
     Indication: HEPATIC NEOPLASM MALIGNANT
     Dosage: 10 MG/KG, Q2W, INTRAVENOUS
     Route: 042
     Dates: start: 20041006
  2. GEMCITABINE (GEMCITABINE HYDROCHLORIDE) [Suspect]
     Indication: HEPATIC NEOPLASM MALIGNANT
     Dosage: 1000 MG/M2,
     Dates: start: 20041006
  3. OXALIPLATIN (OXALIPLATIN) [Suspect]
     Indication: HEPATIC NEOPLASM MALIGNANT
     Dosage: 85 MG/M2,
     Dates: start: 20041006
  4. ALBUTEROL [Concomitant]
  5. CELEXA [Concomitant]
  6. COMPAZINE [Concomitant]
  7. GLYBURIDE [Concomitant]
  8. IBUPROFEN [Concomitant]
  9. LANTUS [Concomitant]
  10. LORAZEPAM [Concomitant]
  11. LOTRIMIN [Concomitant]
  12. METFORMIN HCL (METFORMIN) [Concomitant]
  13. MS CONTIN [Concomitant]
  14. PROTONIX [Concomitant]
  15. TRAZODONE HCL [Concomitant]
  16. ULTRAM [Concomitant]
  17. FENTANYL (FENTANYL CITRATE) [Concomitant]
  18. REGLAN [Concomitant]
  19. LASIX [Concomitant]
  20. SPIRONOLACTONE [Concomitant]
  21. ATIVAN [Concomitant]
  22. ALBUTEROL (ALBUTEROL, ALBUTEROL SULFATE) [Concomitant]

REACTIONS (9)
  - ALANINE AMINOTRANSFERASE INCREASED [None]
  - ENTERITIS [None]
  - HAEMOGLOBIN DECREASED [None]
  - INFECTION [None]
  - PLATELET COUNT DECREASED [None]
  - POST PROCEDURAL NAUSEA [None]
  - POST PROCEDURAL VOMITING [None]
  - RESPIRATORY DEPRESSION [None]
  - SOMNOLENCE [None]
